FAERS Safety Report 9322819 (Version 2)
Quarter: 2013Q3

REPORT INFORMATION
  Report Type: Report from Study
  Country: US (occurrence: US)
  Receive Date: 20130602
  Receipt Date: 20130806
  Transmission Date: 20140515
  Serious: Yes (Other)
  Sender: FDA-Public Use
  Company Number: PHEH2013US005310

PATIENT
  Sex: Female

DRUGS (4)
  1. GLEEVEC [Suspect]
     Indication: CHRONIC MYELOID LEUKAEMIA
     Dosage: 400 MG, QD
     Route: 048
     Dates: start: 200205
  2. PRILOSEC [Concomitant]
     Dosage: 20 MG, QD
     Route: 048
  3. CYMBALTA [Concomitant]
     Dosage: 60 MG, QD
     Route: 048
  4. LANTUS [Concomitant]
     Route: 058

REACTIONS (5)
  - Fall [Unknown]
  - Concussion [Unknown]
  - Amnesia [Unknown]
  - Hypoglycaemia [Unknown]
  - Blood glucose decreased [Unknown]
